FAERS Safety Report 5101269-0 (Version None)
Quarter: 2006Q3

REPORT INFORMATION
  Report Type: 
  Country: None (occurrence: None)
  Receive Date: 20060911
  Receipt Date: 20060330
  Transmission Date: 20061208
  Serious: Yes (Hospitalization)
  Sender: FDA-Public Use
  Company Number: FR-AVENTIS-200611200FR

PATIENT
  Age: 49 Year
  Sex: Female
  Weight: 130 kg

DRUGS (9)
  1. LASILIX [Suspect]
     Indication: ESSENTIAL HYPERTENSION
     Route: 048
  2. VENTOLIN [Suspect]
     Indication: ASTHMA
  3. MONO-TILDIEM [Suspect]
     Indication: DRUG USE FOR UNKNOWN INDICATION
     Route: 048
  4. SERETIDE [Suspect]
     Indication: ASTHMA
  5. EZETROL                                 /GFR/ [Suspect]
     Indication: HYPERCHOLESTEROLAEMIA
     Route: 048
     Dates: start: 20050901, end: 20060204
  6. ZOLPIDEM TARTRATE [Suspect]
     Indication: SLEEP DISORDER
  7. ASPIRIN [Concomitant]
  8. DISCOTRINE [Concomitant]
  9. DAFALGAN [Concomitant]
     Route: 048

REACTIONS (5)
  - BLOOD CREATINE PHOSPHOKINASE INCREASED [None]
  - CONDITION AGGRAVATED [None]
  - MYALGIA [None]
  - RENAL FAILURE [None]
  - RENAL FAILURE CHRONIC [None]
